FAERS Safety Report 23079388 (Version 1)
Quarter: 2023Q4

REPORT INFORMATION
  Report Type: Spontaneous
  Country: US (occurrence: None)
  Receive Date: 20231017
  Receipt Date: 20231017
  Transmission Date: 20240109
  Serious: Yes (Life-Threatening, Disabling)
  Sender: FDA-Public Use
  Company Number: None

PATIENT
  Age: 72 Year
  Sex: Male
  Weight: 70.76 kg

DRUGS (5)
  1. OPZELURA [Suspect]
     Active Substance: RUXOLITINIB PHOSPHATE
     Indication: Vitiligo
     Dates: start: 202211
  2. ATORVASTATIN [Concomitant]
     Active Substance: ATORVASTATIN
  3. HYDROXYCHLOROQUINE [Concomitant]
     Active Substance: HYDROXYCHLOROQUINE
  4. Vitamin C with Vitamin D + Zinc [Concomitant]
  5. ENSURE [Concomitant]
     Active Substance: AMINO ACIDS\DEXTROSE\ELECTROLYTES NOS\SOYBEAN OIL\VITAMINS

REACTIONS (18)
  - Chills [None]
  - Gait inability [None]
  - Balance disorder [None]
  - Asthenia [None]
  - Decreased appetite [None]
  - Oral infection [None]
  - Pharyngitis [None]
  - Dry eye [None]
  - Dry mouth [None]
  - Dry skin [None]
  - Urinary tract infection [None]
  - Herpes zoster [None]
  - Sjogren^s syndrome [None]
  - Fatigue [None]
  - Immune system disorder [None]
  - Weight decreased [None]
  - Feeling abnormal [None]
  - Emotional disorder [None]
